FAERS Safety Report 23172065 (Version 1)
Quarter: 2023Q4

REPORT INFORMATION
  Report Type: Spontaneous
  Country: US (occurrence: US)
  Receive Date: 20231110
  Receipt Date: 20231110
  Transmission Date: 20240109
  Serious: No
  Sender: FDA-Public Use
  Company Number: US-GSK-US2023151604

PATIENT
  Age: 75 Year
  Sex: Female

DRUGS (1)
  1. NUCALA [Suspect]
     Active Substance: MEPOLIZUMAB
     Indication: Asthma
     Dosage: 100 MG, Q4W ADULT SEVERE ASTHMA/ NASAL POLYPS: 100MG SC TO UPPER ARM, THIGH, OR ABDOMEN Q4WK
     Route: 058
     Dates: start: 20220922

REACTIONS (1)
  - Therapy cessation [Unknown]

NARRATIVE: CASE EVENT DATE: 20231031
